FAERS Safety Report 5569947-7 (Version None)
Quarter: 2007Q4

REPORT INFORMATION
  Report Type: 
  Country: None (occurrence: None)
  Receive Date: 20071217
  Receipt Date: 20071206
  Transmission Date: 20080405
  Serious: Yes (Other)
  Sender: FDA-Public Use
  Company Number: GXKR2007IN10515

PATIENT
  Age: 70 Year
  Sex: Male

DRUGS (1)
  1. DICLOFENAC           (DICLOFENAC) [Suspect]
     Indication: ARTHRALGIA
     Dosage: INTRAGLUTEAL

REACTIONS (1)
  - EMBOLIA CUTIS MEDICAMENTOSA [None]
